FAERS Safety Report 9523679 (Version 2)
Quarter: 2013Q3

REPORT INFORMATION
  Report Type: Spontaneous
  Country: DE (occurrence: DE)
  Receive Date: 20130913
  Receipt Date: 20130925
  Transmission Date: 20140515
  Serious: Yes (Other)
  Sender: FDA-Public Use
  Company Number: DE-ROCHE-1272838

PATIENT
  Sex: Female

DRUGS (2)
  1. RITUXIMAB [Suspect]
     Indication: IMMUNE THROMBOCYTOPENIC PURPURA
     Route: 042
     Dates: start: 201304, end: 201304
  2. RITUXIMAB [Suspect]
     Indication: OFF LABEL USE

REACTIONS (6)
  - Blister [Recovered/Resolved]
  - Staphylococcal infection [Recovered/Resolved]
  - Eczema [Unknown]
  - Hyperkeratosis [Not Recovered/Not Resolved]
  - Wound secretion [Not Recovered/Not Resolved]
  - Herpes zoster [Recovered/Resolved]
